FAERS Safety Report 11572845 (Version 1)
Quarter: 2015Q3

REPORT INFORMATION
  Report Type: Spontaneous
  Country: IT (occurrence: IT)
  Receive Date: 20150929
  Receipt Date: 20150929
  Transmission Date: 20151125
  Serious: Yes (Other)
  Sender: FDA-Public Use
  Company Number: IT-BAXTER-2015BAX052551

PATIENT
  Age: 37 Year
  Sex: Female
  Weight: 69 kg

DRUGS (3)
  1. METRONIDAZOLO BAXTER 0,5% [Suspect]
     Active Substance: METRONIDAZOLE
     Indication: SEPTIC SHOCK
     Route: 042
     Dates: start: 20150916, end: 20150916
  2. AMPICILLINA [Suspect]
     Active Substance: AMPICILLIN SODIUM
     Indication: SEPTIC SHOCK
     Route: 042
     Dates: start: 20150914, end: 20150916
  3. CLINDAMICINA [Suspect]
     Active Substance: CLINDAMYCIN HYDROCHLORIDE
     Indication: SEPTIC SHOCK
     Route: 042
     Dates: start: 20150914, end: 20150916

REACTIONS (1)
  - Laryngeal oedema [Recovered/Resolved]

NARRATIVE: CASE EVENT DATE: 20150917
